FAERS Safety Report 6986295-9 (Version None)
Quarter: 2010Q3

REPORT INFORMATION
  Report Type: 
  Country: None (occurrence: None)
  Receive Date: 20100915
  Receipt Date: 20090622
  Transmission Date: 20110219
  Serious: No
  Sender: FDA-Public Use
  Company Number: US-WYE-H09871209

PATIENT
  Sex: Female

DRUGS (7)
  1. PRISTIQ [Suspect]
     Indication: DEPRESSION
     Route: 048
     Dates: start: 20090201, end: 20090618
  2. PRISTIQ [Suspect]
     Route: 048
     Dates: start: 20090619, end: 20090601
  3. PRISTIQ [Suspect]
     Dosage: ALTERNATED 50 MG ONE DAY WITH A 100 MG DOSE THE NEXT DAY PER HCP
     Route: 048
  4. GABAPENTIN [Concomitant]
  5. SEROQUEL [Concomitant]
  6. LITHIUM CARBONATE [Concomitant]
  7. DIAZEPAM [Concomitant]

REACTIONS (4)
  - ANXIETY [None]
  - CONDITION AGGRAVATED [None]
  - DEPRESSION [None]
  - NAUSEA [None]
